FAERS Safety Report 12188969 (Version 1)
Quarter: 2016Q1

REPORT INFORMATION
  Report Type: Report from Study
  Country: US (occurrence: US)
  Receive Date: 20160317
  Receipt Date: 20160317
  Transmission Date: 20160526
  Serious: Yes (Other)
  Sender: FDA-Public Use
  Company Number: US-ABBVIE-16K-163-1537908-00

PATIENT
  Age: 62 Year
  Sex: Female

DRUGS (2)
  1. HUMIRA [Suspect]
     Active Substance: ADALIMUMAB
     Indication: RHEUMATOID ARTHRITIS
     Route: 058
     Dates: start: 201510, end: 20151120
  2. HUMIRA [Suspect]
     Active Substance: ADALIMUMAB
     Route: 058
     Dates: start: 201601

REACTIONS (9)
  - Blood disorder [Unknown]
  - Headache [Unknown]
  - Injection site pain [Unknown]
  - Sinus disorder [Unknown]
  - Tenderness [Unknown]
  - Musculoskeletal pain [Unknown]
  - Gastrointestinal bacterial infection [Unknown]
  - Muscle spasms [Unknown]
  - Cataract [Unknown]

NARRATIVE: CASE EVENT DATE: 201602
